FAERS Safety Report 7267962-9 (Version None)
Quarter: 2011Q1

REPORT INFORMATION
  Report Type: 
  Country: None (occurrence: None)
  Receive Date: 20110201
  Receipt Date: 20110127
  Transmission Date: 20110831
  Serious: Yes (Hospitalization)
  Sender: FDA-Public Use
  Company Number: DE-PFIZER INC-2006091562

PATIENT
  Age: 72 Year
  Sex: Male
  Weight: 74 kg

DRUGS (21)
  1. PREGABALIN [Concomitant]
     Route: 048
     Dates: start: 20060301
  2. OXYCODONE HCL [Concomitant]
     Route: 048
     Dates: start: 20060301
  3. SODIUM PICOSULFATE [Concomitant]
     Dates: start: 20060601
  4. TINZAPARIN SODIUM [Concomitant]
     Dates: start: 20060601
  5. ACICLOVIR [Concomitant]
     Route: 048
     Dates: start: 20060401
  6. PENICILLIN [Concomitant]
  7. ACETYLCYSTEINE [Concomitant]
     Dates: start: 20060401
  8. BETA-ACETYLDIGOXIN [Concomitant]
     Dates: start: 20050801
  9. DICLOFENAC [Concomitant]
     Route: 048
     Dates: start: 20050301, end: 20060301
  10. MOVICOL [Concomitant]
     Route: 048
     Dates: start: 20060301, end: 20060401
  11. ASPIRIN [Concomitant]
     Dates: start: 20060614, end: 20060620
  12. MOVICOL [Concomitant]
     Dates: start: 20060601
  13. METOPROLOL [Concomitant]
     Route: 048
     Dates: start: 20050301
  14. METOCLOPRAMIDE [Concomitant]
     Route: 048
     Dates: start: 20060301
  15. SODIUM PICOSULFATE [Concomitant]
     Dates: start: 20060301, end: 20060401
  16. DIMETICONE [Concomitant]
     Dates: start: 20060401
  17. PANTOZOL [Concomitant]
     Route: 048
     Dates: start: 20060201
  18. METAMIZOLE [Concomitant]
     Route: 048
     Dates: start: 20060301
  19. SUNITINIB MALATE [Suspect]
     Indication: METASTATIC RENAL CELL CARCINOMA
     Dosage: 50 MG, 1X/DAY
     Route: 048
     Dates: start: 20060404
  20. ESOMEPRAZOLE [Concomitant]
     Route: 048
     Dates: start: 20060301
  21. BISOPROLOL [Concomitant]
     Dates: start: 20060601

REACTIONS (1)
  - PNEUMONIA [None]
